FAERS Safety Report 17593550 (Version 1)
Quarter: 2020Q1

REPORT INFORMATION
  Report Type: Spontaneous
  Country: NL (occurrence: NL)
  Receive Date: 20200327
  Receipt Date: 20200327
  Transmission Date: 20200409
  Serious: Yes (Life-Threatening)
  Sender: FDA-Public Use
  Company Number: NL-MYLANLABS-2020M1032524

PATIENT
  Sex: Female
  Weight: 55 kg

DRUGS (4)
  1. QUETIAPINE. [Suspect]
     Active Substance: QUETIAPINE
     Indication: PRODUCT USED FOR UNKNOWN INDICATION
     Dosage: OVERDOSE
     Dates: start: 20200228
  2. OXAZEPAM. [Suspect]
     Active Substance: OXAZEPAM
     Indication: PRODUCT USED FOR UNKNOWN INDICATION
     Dosage: OVERDOSE
     Dates: start: 20200228
  3. TRACYDAL [Suspect]
     Active Substance: TRANYLCYPROMINE SULFATE
     Indication: PRODUCT USED FOR UNKNOWN INDICATION
     Dosage: 250 MG OVERDOSE
     Dates: start: 20200229
  4. TRACYDAL [Suspect]
     Active Substance: TRANYLCYPROMINE SULFATE
     Dosage: 30 MG MAINTENANCE DOSING

REACTIONS (3)
  - Contraindicated product administered [Unknown]
  - Overdose [Unknown]
  - Hypertensive crisis [Unknown]

NARRATIVE: CASE EVENT DATE: 20200228
